FAERS Safety Report 11863253 (Version 3)
Quarter: 2018Q4

REPORT INFORMATION
  Report Type: Report from Study
  Country: CO (occurrence: CO)
  Receive Date: 20151223
  Receipt Date: 20181029
  Transmission Date: 20190204
  Serious: Yes (Hospitalization, Other)
  Sender: FDA-Public Use
  Company Number: PHHY2015CO140686

PATIENT
  Age: 83 Year
  Sex: Male
  Weight: 91 kg

DRUGS (3)
  1. REVOLADE [Suspect]
     Active Substance: ELTROMBOPAG
     Dosage: 2 DF, Q48H
     Route: 048
  2. REVOLADE [Suspect]
     Active Substance: ELTROMBOPAG
     Indication: IMMUNE THROMBOCYTOPENIC PURPURA
     Dosage: 1 DF, Q48H
     Route: 048
     Dates: start: 20150601, end: 20151212
  3. REVOLADE [Suspect]
     Active Substance: ELTROMBOPAG
     Dosage: 1 DF, Q48H
     Route: 048

REACTIONS (10)
  - Haemorrhoids [Unknown]
  - Thrombosis [Unknown]
  - Platelet count increased [Unknown]
  - Urinary tract infection [Unknown]
  - Haemorrhage [Unknown]
  - Influenza [Unknown]
  - Vomiting [Unknown]
  - Platelet count decreased [Recovered/Resolved]
  - Viral infection [Unknown]
  - Diarrhoea [Unknown]

NARRATIVE: CASE EVENT DATE: 20151009
